FAERS Safety Report 16464788 (Version 1)
Quarter: 2019Q2

REPORT INFORMATION
  Report Type: Spontaneous
  Country: US (occurrence: US)
  Receive Date: 20190621
  Receipt Date: 20190621
  Transmission Date: 20190711
  Serious: No
  Sender: FDA-Public Use
  Company Number: US-TEVA-2019-US-1059650

PATIENT
  Sex: Female

DRUGS (2)
  1. ISOTHIAZOLONE [Interacting]
     Active Substance: ISOTHIAZOLINONE
     Route: 065
  2. LIDOCAINE. [Suspect]
     Active Substance: LIDOCAINE
     Route: 065

REACTIONS (2)
  - Drug interaction [Unknown]
  - Adverse drug reaction [Unknown]
